FAERS Safety Report 25589004 (Version 1)
Quarter: 2025Q3

REPORT INFORMATION
  Report Type: Other
  Country: TR (occurrence: TR)
  Receive Date: 20250722
  Receipt Date: 20250722
  Transmission Date: 20251020
  Serious: Yes (Other)
  Sender: APPCO PHARMA LLC
  Company Number: TR-Appco Pharma LLC-2180938

PATIENT
  Age: 34 Year
  Sex: Female

DRUGS (1)
  1. SERTRALINE [Suspect]
     Active Substance: SERTRALINE HYDROCHLORIDE
     Indication: Depressive symptom

REACTIONS (1)
  - Drug ineffective [Unknown]
